FAERS Safety Report 7450661-8 (Version None)
Quarter: 2011Q2

REPORT INFORMATION
  Report Type: 
  Country: None (occurrence: None)
  Receive Date: 20110502
  Receipt Date: 20110425
  Transmission Date: 20111010
  Serious: Yes (Hospitalization, Other)
  Sender: FDA-Public Use
  Company Number: BR-SANOFI-AVENTIS-2010SA054516

PATIENT
  Sex: Male
  Weight: 70 kg

DRUGS (4)
  1. LANTUS [Suspect]
     Route: 058
     Dates: start: 20070101
  2. ANTIHYPERTENSIVES [Concomitant]
     Indication: HYPERTENSION
  3. OPTIPEN [Suspect]
  4. DRUG USED IN DIABETES [Suspect]

REACTIONS (5)
  - HAEMODIALYSIS [None]
  - BLOOD GLUCOSE FLUCTUATION [None]
  - NEPHROLITHIASIS [None]
  - RENAL FAILURE [None]
  - SYNCOPE [None]
